FAERS Safety Report 18433525 (Version 1)
Quarter: 2020Q4

REPORT INFORMATION
  Report Type: Spontaneous
  Country: US (occurrence: US)
  Receive Date: 20201027
  Receipt Date: 20201027
  Transmission Date: 20210114
  Serious: No
  Sender: FDA-Public Use
  Company Number: US-TEVA-2020-US-1841971

PATIENT

DRUGS (7)
  1. IBRANCE [Concomitant]
     Active Substance: PALBOCICLIB
     Dosage: 1 DAILY FOR 21DAYS
     Route: 048
     Dates: start: 20200910
  2. KEYTRUDA [Concomitant]
     Active Substance: PEMBROLIZUMAB
     Dosage: 100MG/4ML VIAL
  3. FIBER [Concomitant]
     Active Substance: PSYLLIUM HUSK
     Dosage: 0.4 G
  4. PROBIOTIC [Concomitant]
     Active Substance: PROBIOTICS NOS
     Dosage: 100B CELL CAPSULE
  5. GRANIX [Suspect]
     Active Substance: TBO-FILGRASTIM
     Route: 065
  6. CLARITIN [Concomitant]
     Active Substance: LORATADINE
     Dosage: 100B CELL CAPSULE
  7. CARBOPLATIN. [Concomitant]
     Active Substance: CARBOPLATIN
     Dosage: 100MG/4ML VIAL

REACTIONS (1)
  - White blood cell count decreased [Unknown]
